FAERS Safety Report 18555841 (Version 4)
Quarter: 2021Q1

REPORT INFORMATION
  Report Type: Report from Study
  Country: CO (occurrence: CO)
  Receive Date: 20201127
  Receipt Date: 20210226
  Transmission Date: 20210419
  Serious: Yes (Death, Hospitalization)
  Sender: FDA-Public Use
  Company Number: NVSC2020CO297182

PATIENT
  Age: 46 Year
  Sex: Female

DRUGS (3)
  1. REVOLADE [Suspect]
     Active Substance: ELTROMBOPAG OLAMINE
     Dosage: 50 MG, Q24H
     Route: 048
  2. PREDNISOLONE. [Concomitant]
     Active Substance: PREDNISOLONE
     Indication: IMMUNE THROMBOCYTOPENIA
     Dosage: UNK, Q24H
     Route: 048
     Dates: start: 202010
  3. REVOLADE [Suspect]
     Active Substance: ELTROMBOPAG OLAMINE
     Indication: IMMUNE THROMBOCYTOPENIA
     Dosage: 50 MG, Q24H (APPROXIMATELY 3 YEARS AGO)
     Route: 048
     Dates: end: 202004

REACTIONS (9)
  - Cardio-respiratory arrest [Fatal]
  - Pneumonia [Recovered/Resolved]
  - Pulmonary congestion [Unknown]
  - Lung disorder [Unknown]
  - Platelet count decreased [Unknown]
  - Choking [Not Recovered/Not Resolved]
  - Pneumonia [Unknown]
  - Platelet count decreased [Recovered/Resolved]
  - Haemoglobin decreased [Recovered/Resolved]

NARRATIVE: CASE EVENT DATE: 202005
